FAERS Safety Report 18034072 (Version 1)
Quarter: 2020Q3

REPORT INFORMATION
  Report Type: Spontaneous
  Country: US (occurrence: US)
  Receive Date: 20200716
  Receipt Date: 20200716
  Transmission Date: 20201103
  Serious: Yes (Death, Disabling)
  Sender: FDA-Public Use
  Company Number: US-PURDUE-USA-2020-0156085

PATIENT
  Sex: Male

DRUGS (1)
  1. OXYCONTIN [Suspect]
     Active Substance: OXYCODONE HYDROCHLORIDE
     Indication: SURGERY
     Dosage: UNKNOWN
     Route: 048

REACTIONS (4)
  - Overdose [Fatal]
  - Impaired work ability [Unknown]
  - Injury [Unknown]
  - Disability [Unknown]

NARRATIVE: CASE EVENT DATE: 20130207
